FAERS Safety Report 8363561-6 (Version None)
Quarter: 2012Q2

REPORT INFORMATION
  Report Type: 
  Country: None (occurrence: None)
  Receive Date: 20120516
  Receipt Date: 20120507
  Transmission Date: 20120825
  Serious: Yes (Hospitalization, Other)
  Sender: FDA-Public Use
  Company Number: CA-JNJFOC-20120413245

PATIENT
  Sex: Female
  Weight: 69 kg

DRUGS (4)
  1. METHOTREXATE [Concomitant]
     Route: 065
  2. FOLIC ACID [Concomitant]
     Route: 065
  3. REMICADE [Suspect]
     Indication: RHEUMATOID ARTHRITIS
     Route: 042
     Dates: start: 20060626
  4. ALENDRONATE SODIUM [Concomitant]
     Route: 065

REACTIONS (2)
  - INCISION SITE INFECTION [None]
  - HIP ARTHROPLASTY [None]
